FAERS Safety Report 5670659-X (Version None)
Quarter: 2008Q1

REPORT INFORMATION
  Report Type: 
  Country: None (occurrence: None)
  Receive Date: 20080314
  Receipt Date: 20080314
  Transmission Date: 20080703
  Serious: Yes (Hospitalization)
  Sender: FDA-Public Use
  Company Number: None

PATIENT
  Age: 6 Year
  Sex: Male
  Weight: 25.855 kg

DRUGS (1)
  1. CONCERTA [Suspect]
     Dosage: ONE 27 MG PILL DAILY PO
     Route: 048

REACTIONS (4)
  - ABNORMAL BEHAVIOUR [None]
  - FEAR [None]
  - HALLUCINATION, VISUAL [None]
  - PANIC REACTION [None]
